FAERS Safety Report 23064944 (Version 5)
Quarter: 2024Q1

REPORT INFORMATION
  Report Type: Spontaneous
  Country: US (occurrence: US)
  Receive Date: 20231013
  Receipt Date: 20240307
  Transmission Date: 20240409
  Serious: No
  Sender: FDA-Public Use
  Company Number: US-PFIZER INC-PV202300165545

PATIENT
  Age: 57 Year
  Sex: Female
  Weight: 72.562 kg

DRUGS (2)
  1. TRAZIMERA [Suspect]
     Active Substance: TRASTUZUMAB-QYYP
     Indication: Breast cancer stage IV
     Dosage: 21 MG/ML EVERY 3 WEEKS
     Dates: start: 201902
  2. PERTUZUMAB [Concomitant]
     Active Substance: PERTUZUMAB
     Dosage: MAINTENANCE DOSE EVERY 3 WEEKS
     Dates: start: 201902

REACTIONS (2)
  - Neoplasm recurrence [Not Recovered/Not Resolved]
  - Confusional state [Recovered/Resolved]

NARRATIVE: CASE EVENT DATE: 20211101
